FAERS Safety Report 15889326 (Version 1)
Quarter: 2019Q1

REPORT INFORMATION
  Report Type: Report from Study
  Country: US (occurrence: US)
  Receive Date: 20190130
  Receipt Date: 20190130
  Transmission Date: 20190417
  Serious: Yes (Hospitalization, Other)
  Sender: FDA-Public Use
  Company Number: US-SAKK-2019SA023636AA

PATIENT
  Age: 34 Year
  Sex: Male

DRUGS (2)
  1. INSULIN GLARGINE/LIXISENATIDE [Suspect]
     Active Substance: INSULIN GLARGINE\LIXISENATIDE
     Dosage: 20 U, UNK
     Route: 051
     Dates: start: 20190117
  2. INSULIN GLARGINE [Suspect]
     Active Substance: INSULIN GLARGINE
     Dosage: 15 U, QD

REACTIONS (4)
  - Epididymitis [Unknown]
  - Diabetic ketoacidosis [Unknown]
  - Blood glucose increased [Unknown]
  - Off label use [Unknown]
